FAERS Safety Report 4341889-4 (Version None)
Quarter: 2004Q2

REPORT INFORMATION
  Report Type: 
  Country: None (occurrence: None)
  Receive Date: 20040415
  Receipt Date: 20040330
  Transmission Date: 20050107
  Serious: Yes (Other)
  Sender: FDA-Public Use
  Company Number: USA040363685

PATIENT
  Sex: Male

DRUGS (2)
  1. PROZAC [Suspect]
     Indication: ANXIETY
     Dosage: 30 MG DAY
     Dates: start: 19940101
  2. PROZAC [Suspect]
     Indication: DEPRESSION
     Dosage: 30 MG DAY
     Dates: start: 19940101

REACTIONS (3)
  - INJURY [None]
  - OSTEOARTHRITIS [None]
  - ROTATOR CUFF SYNDROME [None]
